FAERS Safety Report 18956288 (Version 1)
Quarter: 2021Q1

REPORT INFORMATION
  Report Type: Spontaneous
  Country: DE (occurrence: DE)
  Receive Date: 20210301
  Receipt Date: 20210301
  Transmission Date: 20210420
  Serious: Yes (Other)
  Sender: FDA-Public Use
  Company Number: DE-AMGEN-DEUSP2021029581

PATIENT
  Age: 46 Year
  Sex: Female

DRUGS (5)
  1. CYCLOSPORIN A [Concomitant]
     Active Substance: CYCLOSPORINE
     Indication: PROPHYLAXIS
  2. METHOTREXATE. [Concomitant]
     Active Substance: METHOTREXATE
     Indication: PROPHYLAXIS
  3. BUSULFAN. [Concomitant]
     Active Substance: BUSULFAN
     Indication: PREOPERATIVE CARE
     Dosage: 16 MILLIGRAM/KILOGRAM
  4. CYCLOPHOSPHAMIDE. [Concomitant]
     Active Substance: CYCLOPHOSPHAMIDE
     Indication: PREOPERATIVE CARE
     Dosage: 120 MILLIGRAM/KILOGRAM
  5. NEUPOGEN [Suspect]
     Active Substance: FILGRASTIM
     Indication: PRODUCT USED FOR UNKNOWN INDICATION
     Dosage: 5 MICROGRAM/KILOGRAM, QD
     Route: 065

REACTIONS (1)
  - Graft versus host disease in skin [Unknown]
